FAERS Safety Report 10361031 (Version 1)
Quarter: 2014Q3

REPORT INFORMATION
  Report Type: Spontaneous
  Country: AU (occurrence: None)
  Receive Date: 20140731
  Receipt Date: 20140731
  Transmission Date: 20150326
  Serious: Yes (Hospitalization)
  Sender: FDA-Public Use
  Company Number: FK201402928

PATIENT
  Age: 49 Year
  Sex: Male
  Weight: 46 kg

DRUGS (3)
  1. ESOMEPRAZOLE [Concomitant]
     Active Substance: ESOMEPRAZOLE
  2. PACLITAXEL. [Suspect]
     Active Substance: PACLITAXEL
     Indication: OESOPHAGEAL SQUAMOUS CELL CARCINOMA
     Dosage: 70 MG, 1 IN 1 WK, INTRAVENOUS ( NOT OTHERWISE SPECIFIED)
     Route: 042
     Dates: start: 20140624, end: 20140624
  3. COLCHICINE. [Concomitant]
     Active Substance: COLCHICINE

REACTIONS (10)
  - Hypertension [None]
  - Loss of consciousness [None]
  - Dyskinesia [None]
  - Flushing [None]
  - Eye movement disorder [None]
  - Back pain [None]
  - Urinary incontinence [None]
  - Throat irritation [None]
  - Dyspnoea [None]
  - Unresponsive to stimuli [None]

NARRATIVE: CASE EVENT DATE: 20140624
